FAERS Safety Report 9376188 (Version 1)
Quarter: 2013Q3

REPORT INFORMATION
  Report Type: Spontaneous
  Country: AU (occurrence: AU)
  Receive Date: 20130701
  Receipt Date: 20130701
  Transmission Date: 20140515
  Serious: Yes (Other)
  Sender: FDA-Public Use
  Company Number: PHHY2013AU065656

PATIENT
  Age: 25 Year
  Sex: Female

DRUGS (4)
  1. TRILEPTAL [Suspect]
     Dosage: UNK UKN, UNK
  2. LAMOTRIGINE [Suspect]
     Dosage: UNK UKN, UNK
  3. AMOXICILLIN [Suspect]
     Dosage: UNK UKN, UNK
  4. TOPAMAX [Suspect]
     Dosage: UNK UKN, UNK

REACTIONS (2)
  - Abortion spontaneous [Unknown]
  - Maternal exposure during pregnancy [Unknown]
